FAERS Safety Report 26193602 (Version 1)
Quarter: 2025Q4

REPORT INFORMATION
  Report Type: Spontaneous
  Country: US (occurrence: None)
  Receive Date: 20251223
  Receipt Date: 20251223
  Transmission Date: 20260118
  Serious: Yes (Other)
  Sender: FDA-CTU
  Company Number: None

PATIENT
  Age: 31 Year
  Sex: Male

DRUGS (3)
  1. RINVOQ [Suspect]
     Active Substance: UPADACITINIB
  2. DUPIXENT [Suspect]
     Active Substance: DUPILUMAB
     Dosage: FREQUENCY : EVERY OTHER WEEK
  3. EBGLYSS [Suspect]
     Active Substance: LEBRIKIZUMAB-LBKZ

REACTIONS (6)
  - Drug ineffective [None]
  - Therapy cessation [None]
  - Condition aggravated [None]
  - Dermatitis atopic [None]
  - Staphylococcal infection [None]
  - Therapy change [None]
